FAERS Safety Report 15656147 (Version 1)
Quarter: 2018Q4

REPORT INFORMATION
  Report Type: Spontaneous
  Country: US (occurrence: US)
  Receive Date: 20181115
  Receipt Date: 20181115
  Transmission Date: 20190205
  Serious: Yes (Hospitalization)
  Sender: FDA-Public Use
  Company Number: None

PATIENT
  Age: 64 Year
  Sex: Male

DRUGS (6)
  1. ZOLPIDEM XR [Concomitant]
  2. CALCITROL [Concomitant]
     Active Substance: CALCITRIOL
  3. FAMOTIDINE. [Concomitant]
     Active Substance: FAMOTIDINE
  4. HUMIRA [Suspect]
     Active Substance: ADALIMUMAB
     Indication: CROHN^S DISEASE
     Route: 058
     Dates: start: 20180330
  5. SERTRALINE [Concomitant]
     Active Substance: SERTRALINE HYDROCHLORIDE
  6. ALENDRONATE [Concomitant]
     Active Substance: ALENDRONATE SODIUM

REACTIONS (3)
  - Renal disorder [None]
  - Eating disorder [None]
  - Asthenia [None]

NARRATIVE: CASE EVENT DATE: 201810
